FAERS Safety Report 5449504-3 (Version None)
Quarter: 2007Q3

REPORT INFORMATION
  Report Type: 
  Country: None (occurrence: None)
  Receive Date: 20070907
  Receipt Date: 20070824
  Transmission Date: 20080115
  Serious: Yes (Hospitalization)
  Sender: FDA-Public Use
  Company Number: 02100-JPN-07-0299

PATIENT
  Age: 58 Year
  Sex: Male

DRUGS (31)
  1. CILOSTAZOL [Suspect]
     Indication: CEREBRAL INFARCTION
     Dosage: ONE OF 200 MG ORAL
     Route: 048
     Dates: start: 20070131, end: 20070617
  2. CLOPIDOGREL [Suspect]
     Indication: CEREBRAL INFARCTION
     Dosage: 75 MG ORAL
     Route: 048
     Dates: start: 20070716, end: 20070821
  3. ASPIRIN [Concomitant]
  4. EPROSARTAN/HYDROCHLOROTHIAZIDE [Concomitant]
  5. LERCANIDIPINE HYDROCHLORIDE [Concomitant]
  6. HYDROCHLOROTHIAZIDE [Concomitant]
  7. APLRAZOLAM [Concomitant]
  8. CALCIUM GLUCONATE [Concomitant]
  9. FUROSEMIDE [Concomitant]
  10. CIMETIDNE [Concomitant]
  11. 20% ALBUMIN [Concomitant]
  12. GLAMIN INJ. [Concomitant]
  13. PN-TWIN INFUSION BAG [Concomitant]
  14. LEVOFLOXACIN [Concomitant]
  15. COUGH SYRUP S [Concomitant]
  16. POTASSIUM CHLORIDE [Concomitant]
  17. MAGNESIUM HYDROXIDE TAB [Concomitant]
  18. DOMPERIDONE [Concomitant]
  19. MOSAPRIDE CITRATE [Concomitant]
  20. PAROXETINE HYDROCHLORIDE [Concomitant]
  21. CLONAZEPAM [Concomitant]
  22. ESCITALOPRAM OXALATE [Concomitant]
  23. CARDUUS MARIANUS EXTRACT [Concomitant]
  24. TAMSULOSIN HYDROCHLORIDE [Concomitant]
  25. TARAZOSIN [Concomitant]
  26. GABAPENTIN [Concomitant]
  27. HYDROXYZINE HYDROCHLORIDE [Concomitant]
  28. ALFUZOSIN HYDROCHLORIDE [Concomitant]
  29. BENIDIPINE HYDROCHLORIDE [Concomitant]
  30. OLMESARTAN MEDOXOMIL [Concomitant]
  31. URSA [Concomitant]

REACTIONS (4)
  - ALCOHOL POISONING [None]
  - FALL [None]
  - LUMBAR VERTEBRAL FRACTURE [None]
  - RIB FRACTURE [None]
